FAERS Safety Report 5771380-X (Version None)
Quarter: 2008Q2

REPORT INFORMATION
  Report Type: 
  Country: None (occurrence: None)
  Receive Date: 20080610
  Receipt Date: 20080603
  Transmission Date: 20081010
  Serious: Yes (Hospitalization)
  Sender: FDA-Public Use
  Company Number: 163-20785-08031597

PATIENT
  Age: 52 Year
  Sex: Female

DRUGS (17)
  1. THALOMID [Suspect]
     Indication: OVARIAN CANCER
     Dosage: 50 MG, 1 IN 1 D, ORAL
     Route: 048
     Dates: start: 20071101, end: 20071106
  2. TOPOTECAN (TOPOTECAN) [Concomitant]
  3. POTASSIUM (POTASSIUM) [Concomitant]
  4. ZANTAC [Concomitant]
  5. DEXAMETHASONE TAB [Concomitant]
  6. STOOL SOFTENER (DOCUSATE SODIUM) [Concomitant]
  7. LASIX [Concomitant]
  8. VALIUM [Concomitant]
  9. LORTAB [Concomitant]
  10. ALLEGRA [Concomitant]
  11. COUMADIN [Concomitant]
  12. IMODIUM [Concomitant]
  13. ALOXI [Concomitant]
  14. DECADRON [Concomitant]
  15. ARANESP [Concomitant]
  16. NEUPOGEN [Concomitant]
  17. WARFARIN SODIUM [Concomitant]

REACTIONS (5)
  - FALL [None]
  - HIP FRACTURE [None]
  - HYPERSENSITIVITY [None]
  - RASH [None]
  - URTICARIA [None]
